FAERS Safety Report 9376138 (Version 1)
Quarter: 2013Q2

REPORT INFORMATION
  Report Type: Spontaneous
  Country: NL (occurrence: NL)
  Receive Date: 20130630
  Receipt Date: 20130630
  Transmission Date: 20140414
  Serious: Yes (Other)
  Sender: FDA-Public Use
  Company Number: NL-TEVA-415647ISR

PATIENT
  Age: 10 Week
  Sex: Female

DRUGS (1)
  1. PREDNISOLONE [Suspect]
     Indication: HAEMANGIOMA
     Dosage: 3 MG/KG/DAY, IN 3 DIVIDED DOSES
     Route: 048

REACTIONS (2)
  - Adrenal insufficiency [Recovered/Resolved]
  - Cushingoid [Unknown]
